FAERS Safety Report 13830154 (Version 2)
Quarter: 2019Q3

REPORT INFORMATION
  Report Type: Spontaneous
  Country: US (occurrence: US)
  Receive Date: 20170803
  Receipt Date: 20190827
  Transmission Date: 20191004
  Serious: No
  Sender: FDA-Public Use
  Company Number: US-SA-2017SA099313

PATIENT
  Sex: Male

DRUGS (2)
  1. PRALUENT [Suspect]
     Active Substance: ALIROCUMAB
     Dosage: 75 MG,QOW
     Route: 058
     Dates: start: 20170116
  2. PRALUENT [Suspect]
     Active Substance: ALIROCUMAB
     Indication: TYPE V HYPERLIPIDAEMIA
     Dosage: UNK UNK,UNK
     Route: 058
     Dates: start: 2015

REACTIONS (5)
  - Paraesthesia [Unknown]
  - Myalgia [Unknown]
  - Musculoskeletal pain [Recovering/Resolving]
  - Asthenia [Unknown]
  - Neuralgia [Unknown]
